FAERS Safety Report 7716540-3 (Version None)
Quarter: 2011Q3

REPORT INFORMATION
  Report Type: 
  Country: None (occurrence: None)
  Receive Date: 20110829
  Receipt Date: 20110712
  Transmission Date: 20111222
  Serious: No
  Sender: FDA-Public Use
  Company Number: US-ABBOTT-11P-163-0838706-00

PATIENT
  Sex: Male
  Weight: 86.26 kg

DRUGS (3)
  1. GLYBURIDE [Concomitant]
     Indication: DIABETES MELLITUS
  2. METFORMIN HYDROCHLORIDE [Concomitant]
     Indication: DIABETES MELLITUS
  3. ANDROGEL [Suspect]
     Indication: BLOOD TESTOSTERONE DECREASED
     Dosage: 2 PUMPS PER DAY
     Dates: start: 20110620

REACTIONS (1)
  - DRUG INEFFECTIVE [None]
